FAERS Safety Report 7889155-4 (Version None)
Quarter: 2011Q4

REPORT INFORMATION
  Report Type: 
  Country: None (occurrence: None)
  Receive Date: 20111103
  Receipt Date: 20111027
  Transmission Date: 20120403
  Serious: Yes (Other)
  Sender: FDA-Public Use
  Company Number: DE-PFIZER INC-2011262055

PATIENT
  Age: 30 Year
  Sex: Male

DRUGS (1)
  1. REVATIO [Suspect]
     Dosage: 80 MG, 4X/DAY
     Dates: start: 20081201

REACTIONS (2)
  - RENAL FUNCTION TEST ABNORMAL [None]
  - CARDIAC DISORDER [None]
